FAERS Safety Report 21261672 (Version 2)
Quarter: 2023Q2

REPORT INFORMATION
  Report Type: Report from Study
  Country: CA (occurrence: CA)
  Receive Date: 20220827
  Receipt Date: 20230626
  Transmission Date: 20230722
  Serious: Yes (Hospitalization)
  Sender: FDA-Public Use
  Company Number: CA-NOVARTISPH-NVSC2022CA190330

PATIENT
  Age: 62 Year
  Sex: Male

DRUGS (1)
  1. COSENTYX [Suspect]
     Active Substance: SECUKINUMAB
     Indication: Psoriasis
     Dosage: 300 MG, Q2W
     Route: 058
     Dates: start: 20191008

REACTIONS (4)
  - Skin ulcer [Unknown]
  - Pain of skin [Unknown]
  - Pruritus [Unknown]
  - Social anxiety disorder [Unknown]

NARRATIVE: CASE EVENT DATE: 20220822
